FAERS Safety Report 25807799 (Version 1)
Quarter: 2025Q3

REPORT INFORMATION
  Report Type: Spontaneous
  Country: TW (occurrence: TW)
  Receive Date: 20250916
  Receipt Date: 20250916
  Transmission Date: 20251020
  Serious: Yes (Death, Hospitalization, Other)
  Sender: PFIZER
  Company Number: TW-PFIZER INC-PV202500110803

PATIENT
  Age: 82 Year
  Sex: Male
  Weight: 54 kg

DRUGS (5)
  1. TYGACIL [Suspect]
     Active Substance: TIGECYCLINE
     Indication: Klebsiella infection
     Dosage: 100 MG, 2X/DAY
     Route: 041
     Dates: start: 20250825, end: 20250902
  2. MEROPENEM [Concomitant]
     Active Substance: MEROPENEM
     Indication: Klebsiella infection
     Dates: start: 20250820, end: 20250820
  3. MEROPENEM [Concomitant]
     Active Substance: MEROPENEM
     Dosage: 1 G, 2X/DAY
     Dates: start: 20250821
  4. COLISTIN [Concomitant]
     Active Substance: COLISTIN
     Indication: Klebsiella infection
     Dosage: 66.8 MG, 2X/DAY
     Dates: start: 20250820, end: 20250820
  5. COLISTIN [Concomitant]
     Active Substance: COLISTIN
     Dosage: 80 MG, 2X/DAY
     Dates: start: 20250821

REACTIONS (3)
  - Pancreatitis acute [Fatal]
  - Septic shock [Fatal]
  - Off label use [Unknown]

NARRATIVE: CASE EVENT DATE: 20250101
